FAERS Safety Report 5816560-X (Version None)
Quarter: 2008Q3

REPORT INFORMATION
  Report Type: 
  Country: None (occurrence: None)
  Receive Date: 20080716
  Receipt Date: 20070710
  Transmission Date: 20090109
  Serious: Yes (Other)
  Sender: FDA-Public Use
  Company Number: US-JNJFOC-20070600166

PATIENT
  Age: 42 Year
  Sex: Female

DRUGS (2)
  1. MOTRIN IB [Suspect]
     Indication: HEADACHE
     Dosage: MONTHLY, AS NEEDED
     Dates: start: 20010101
  2. MOTRIN IB [Suspect]
     Indication: MYALGIA
     Dosage: MONTHLY, AS NEEDED
     Dates: start: 20010101

REACTIONS (4)
  - GASTRITIS [None]
  - GASTROOESOPHAGEAL REFLUX DISEASE [None]
  - INCORRECT DRUG ADMINISTRATION DURATION [None]
  - METAPLASIA [None]
